FAERS Safety Report 8465102-1 (Version None)
Quarter: 2012Q2

REPORT INFORMATION
  Report Type: 
  Country: None (occurrence: None)
  Receive Date: 20120626
  Receipt Date: 20120618
  Transmission Date: 20120825
  Serious: Yes (Hospitalization)
  Sender: FDA-Public Use
  Company Number: US-BAYER-2012-061029

PATIENT
  Age: 39 Year
  Sex: Female
  Weight: 78.005 kg

DRUGS (16)
  1. YASMIN [Suspect]
  2. CLINDAMYCIN [Concomitant]
     Dosage: 300 MG, QID
     Route: 048
  3. TRAMADOL HCL [Concomitant]
  4. LUPRON [Concomitant]
     Dosage: 3.75 MG, UNK
  5. PERCOCET [Concomitant]
     Indication: PAIN
     Dosage: 325 MG./5 MG. 1 TABLET BY MOUTH EVERY 6 HOURS AS NEEDED
     Dates: start: 20101117
  6. ORTHO CYCLEN-28 [Concomitant]
  7. CEFAZOLIN [Concomitant]
     Dosage: UNK
     Dates: start: 20101117
  8. TORADOL [Concomitant]
     Dosage: UNK
     Dates: start: 20101117
  9. MOTRIN [Concomitant]
     Indication: PAIN
     Dosage: 600 MG. 1 TABLET BY MOUTH EVERY 6 HOURS AS NEEDED
     Dates: start: 20101117
  10. COLACE [Concomitant]
     Indication: CONSTIPATION
     Dosage: 100 MG. 1 TABLET BY MOUTH TWICE DAILY
     Dates: start: 20101117
  11. IBUPROFEN [Concomitant]
     Dosage: 800MG EVERY 6 HOURS PRN
     Route: 048
     Dates: start: 20101117
  12. METRONIDAZOLE [Concomitant]
     Dosage: 500 MG, BID
     Route: 048
     Dates: start: 20101126
  13. FERROUS SULFATE TAB [Concomitant]
     Dosage: UNK UNK, TID
  14. ENOXAPARIN [Concomitant]
  15. ACETAMINOPHEN [Concomitant]
  16. MORPHINE [Concomitant]
     Dosage: UNK
     Dates: start: 20101117

REACTIONS (1)
  - PULMONARY EMBOLISM [None]
